FAERS Safety Report 10201628 (Version 1)
Quarter: 2014Q2

REPORT INFORMATION
  Report Type: Spontaneous
  Country: DE (occurrence: DE)
  Receive Date: 20140528
  Receipt Date: 20140528
  Transmission Date: 20141212
  Serious: Yes (Other)
  Sender: FDA-Public Use
  Company Number: PHHY2014DE065156

PATIENT
  Age: 53 Year
  Sex: Female

DRUGS (1)
  1. LEPONEX [Suspect]
     Dosage: 100 MG, UNK

REACTIONS (1)
  - Emphysema [Unknown]
